FAERS Safety Report 7989308-0 (Version None)
Quarter: 2011Q4

REPORT INFORMATION
  Report Type: 
  Country: None (occurrence: None)
  Receive Date: 20111219
  Receipt Date: 20111208
  Transmission Date: 20120403
  Serious: Yes (Life-Threatening, Hospitalization)
  Sender: FDA-Public Use
  Company Number: JP-GENZYME-THYM-1002976

PATIENT
  Sex: Male
  Weight: 61 kg

DRUGS (10)
  1. ACYCLOVIR [Concomitant]
     Indication: ANTIVIRAL PROPHYLAXIS
     Dosage: UNK
     Dates: start: 20101022
  2. SULFAMETHOPRIM [Concomitant]
     Indication: ANTIFUNGAL PROPHYLAXIS
     Dosage: UNK
     Dates: start: 20101022, end: 20110124
  3. METHYLPREDNISOLONE SODIUM SUCCINATE [Concomitant]
     Indication: PROPHYLAXIS AGAINST GRAFT VERSUS HOST DISEASE
     Dosage: UNK
     Dates: start: 20101020, end: 20110323
  4. LEVOFLOXACIN [Concomitant]
     Indication: INFECTION PROPHYLAXIS
     Dosage: UNK
     Dates: start: 20101221, end: 20110326
  5. TACROLIMUS [Concomitant]
     Indication: PROPHYLAXIS AGAINST GRAFT VERSUS HOST DISEASE
     Dosage: UNK
     Dates: start: 20101021
  6. THYMOGLOBULIN [Suspect]
     Dosage: 62 MG, QD
     Route: 042
     Dates: start: 20110107, end: 20110107
  7. ITRACONAZOLE [Concomitant]
     Indication: ANTIFUNGAL PROPHYLAXIS
     Dosage: UNK
     Dates: start: 20101022
  8. FILGRASTIM [Concomitant]
     Indication: INFECTION PROPHYLAXIS
     Dosage: UNK
     Dates: start: 20101125, end: 20101209
  9. PREDNISOLONE [Concomitant]
     Indication: PROPHYLAXIS AGAINST GRAFT VERSUS HOST DISEASE
     Dosage: UNK
     Dates: start: 20110324
  10. THYMOGLOBULIN [Suspect]
     Indication: ACUTE GRAFT VERSUS HOST DISEASE
     Dosage: 62 MG, QD
     Route: 042
     Dates: start: 20101026, end: 20101026

REACTIONS (4)
  - BRONCHOPULMONARY ASPERGILLOSIS [None]
  - HEPATIC STEATOSIS [None]
  - SEPTIC SHOCK [None]
  - DISSEMINATED INTRAVASCULAR COAGULATION [None]
